FAERS Safety Report 8816938 (Version 1)
Quarter: 2012Q4

REPORT INFORMATION
  Report Type: Spontaneous
  Country: US (occurrence: None)
  Receive Date: 20121002
  Receipt Date: 20121002
  Transmission Date: 20130627
  Serious: No
  Sender: FDA-Public Use
  Company Number: None

PATIENT
  Age: 69 Year
  Sex: Male
  Weight: 121.56 kg

DRUGS (1)
  1. VARENICLINE [Suspect]
     Indication: SMOKING CESSATION THERAPY
     Dosage: 0.5 mg daily po
     Route: 048
     Dates: start: 20120914, end: 20120917

REACTIONS (5)
  - Fall [None]
  - Hyperhidrosis [None]
  - Nausea [None]
  - Abnormal dreams [None]
  - Hemiparesis [None]
